FAERS Safety Report 7638703-8 (Version None)
Quarter: 2011Q3

REPORT INFORMATION
  Report Type: 
  Country: None (occurrence: None)
  Receive Date: 20110727
  Receipt Date: 20110722
  Transmission Date: 20111222
  Serious: Yes (Hospitalization)
  Sender: FDA-Public Use
  Company Number: US-AMGEN-USASP2011037493

PATIENT
  Age: 39 Year
  Sex: Male

DRUGS (5)
  1. DILAUDID [Concomitant]
  2. NPLATE [Suspect]
     Indication: IDIOPATHIC THROMBOCYTOPENIC PURPURA
     Dosage: UNK
     Dates: start: 20101022
  3. VERAPAMIL [Concomitant]
  4. AMITRIPTYLINE HCL [Concomitant]
  5. ZOFRAN [Concomitant]

REACTIONS (3)
  - MIGRAINE [None]
  - HEADACHE [None]
  - HEMIPARESIS [None]
